FAERS Safety Report 10252202 (Version 1)
Quarter: 2014Q2

REPORT INFORMATION
  Report Type: Spontaneous
  Country: US (occurrence: US)
  Receive Date: 20140623
  Receipt Date: 20140623
  Transmission Date: 20141212
  Serious: Yes (Other)
  Sender: FDA-Public Use
  Company Number: US-SA-2014SA077826

PATIENT
  Age: 59 Year
  Sex: Male

DRUGS (1)
  1. LANTUS SOLOSTAR [Suspect]
     Indication: TYPE 2 DIABETES MELLITUS
     Dosage: ONE AND HALF YEAR AGO DOSE:30 UNIT(S)
     Route: 065

REACTIONS (5)
  - Disability [Unknown]
  - Cardiac pacemaker insertion [Unknown]
  - Diabetes mellitus inadequate control [Unknown]
  - Infrequent bowel movements [Unknown]
  - Neuropathy peripheral [Unknown]
